FAERS Safety Report 6028169-6 (Version None)
Quarter: 2008Q4

REPORT INFORMATION
  Report Type: 
  Country: None (occurrence: None)
  Receive Date: 20081231
  Receipt Date: 20081231
  Transmission Date: 20090506
  Serious: Yes (Hospitalization)
  Sender: FDA-Public Use
  Company Number: None

PATIENT
  Sex: Male
  Weight: 72.1219 kg

DRUGS (8)
  1. GEMCITABINE [Suspect]
     Indication: PANCREATIC CARCINOMA
     Dosage: AS ABOVE
  2. TARCEVA [Suspect]
     Indication: PANCREATIC CARCINOMA
     Dosage: AS ABOVE
  3. RADIATION 40CGY BID DAYS 1,2,8,9 [Suspect]
     Indication: PANCREATIC CARCINOMA
     Dosage: AS ABOVE
  4. SPIROALDACTONE [Concomitant]
  5. REGLAN [Concomitant]
  6. COLACE [Concomitant]
  7. ZOFRAN [Concomitant]
  8. COMPAZINE [Concomitant]

REACTIONS (3)
  - DEHYDRATION [None]
  - HAEMOGLOBIN DECREASED [None]
  - PYREXIA [None]
